FAERS Safety Report 12691846 (Version 1)
Quarter: 2016Q3

REPORT INFORMATION
  Report Type: Spontaneous
  Country: US (occurrence: US)
  Receive Date: 20160827
  Receipt Date: 20160827
  Transmission Date: 20161109
  Serious: Yes (Other)
  Sender: FDA-Public Use
  Company Number: US-JNJFOC-20160812123

PATIENT
  Age: 7 Year

DRUGS (1)
  1. LISTERINE ANTISEPTIC MOUTHWASH [Suspect]
     Active Substance: EUCALYPTOL\MENTHOL\METHYL SALICYLATE\THYMOL
     Indication: INTENTIONAL PRODUCT USE ISSUE
     Route: 048

REACTIONS (3)
  - Intentional product use issue [Unknown]
  - Loss of consciousness [Unknown]
  - Intentional product misuse [Unknown]
